FAERS Safety Report 4655016-7 (Version None)
Quarter: 2005Q2

REPORT INFORMATION
  Report Type: 
  Country: None (occurrence: None)
  Receive Date: 20050504
  Receipt Date: 20050301
  Transmission Date: 20051028
  Serious: Yes (Hospitalization)
  Sender: FDA-Public Use
  Company Number: PAR_0012_2005

PATIENT
  Age: 20 Year
  Sex: Female

DRUGS (2)
  1. ISOPTIN SR [Suspect]
     Indication: MALAISE
     Dosage: DF IV
     Route: 042
     Dates: start: 19970101
  2. ISOPTIN SR [Suspect]
     Indication: TACHYCARDIA
     Dosage: DF IV
     Route: 042
     Dates: start: 19970101

REACTIONS (1)
  - CONDITION AGGRAVATED [None]
